FAERS Safety Report 23807997 (Version 1)
Quarter: 2024Q2

REPORT INFORMATION
  Report Type: Spontaneous
  Country: BA (occurrence: BA)
  Receive Date: 20240502
  Receipt Date: 20240502
  Transmission Date: 20240716
  Serious: Yes (Other)
  Sender: FDA-Public Use
  Company Number: BA-002147023-NVSC2024BA089183

PATIENT
  Age: 58 Year
  Sex: Male

DRUGS (3)
  1. TAFINLAR [Suspect]
     Active Substance: DABRAFENIB MESYLATE
     Indication: Metastatic malignant melanoma
     Dosage: 75 MG ( 1X2 IN THE MORNING AND 1X2 IN THE EVENING)
     Route: 048
     Dates: start: 202106, end: 202309
  2. MEKINIST [Suspect]
     Active Substance: TRAMETINIB DIMETHYL SULFOXIDE
     Indication: Metastatic malignant melanoma
     Dosage: 2 MG, QD (ONCE A DAY WITH MORNING OR EVENING)
     Route: 048
     Dates: start: 202106, end: 202309
  3. NIVOLUMAB [Suspect]
     Active Substance: NIVOLUMAB
     Indication: Product used for unknown indication
     Dosage: UNK
     Route: 065
     Dates: start: 202312

REACTIONS (7)
  - Brain neoplasm [Unknown]
  - Metastases to central nervous system [Unknown]
  - Pyrexia [Recovering/Resolving]
  - Neoplasm skin [Unknown]
  - Fatigue [Unknown]
  - Speech disorder [Unknown]
  - Headache [Unknown]

NARRATIVE: CASE EVENT DATE: 20210601
